FAERS Safety Report 10041638 (Version 1)
Quarter: 2014Q1

REPORT INFORMATION
  Report Type: Spontaneous
  Country: US (occurrence: US)
  Receive Date: 20140327
  Receipt Date: 20140327
  Transmission Date: 20141002
  Serious: No
  Sender: FDA-Public Use
  Company Number: US-009507513-1403USA012114

PATIENT
  Age: 25 Year
  Sex: Female
  Weight: 64.85 kg

DRUGS (2)
  1. NUVARING [Suspect]
     Indication: CONTRACEPTION
     Dosage: 3 WEEKS IN 1 WEEK OUT
     Route: 067
     Dates: start: 201307, end: 20140317
  2. NUVARING [Suspect]
     Dosage: UNK
     Route: 067
     Dates: start: 20140324

REACTIONS (1)
  - Urinary tract infection [Unknown]
